FAERS Safety Report 7317744-4 (Version None)
Quarter: 2011Q1

REPORT INFORMATION
  Report Type: 
  Country: None (occurrence: None)
  Receive Date: 20110226
  Receipt Date: 20101206
  Transmission Date: 20110831
  Serious: No
  Sender: FDA-Public Use
  Company Number: US-ALLERGAN-1015803US

PATIENT
  Age: 75 Year
  Sex: Female

DRUGS (1)
  1. BOTOXA? [Suspect]
     Indication: MUSCLE SPASTICITY
     Dosage: UNK UNITS Q 3 MONTHS
     Route: 030
     Dates: start: 20101119, end: 20101119

REACTIONS (5)
  - DYSPNOEA [None]
  - DYSPHONIA [None]
  - APHONIA [None]
  - PAIN [None]
  - MUSCLE SPASMS [None]
